FAERS Safety Report 7438883-3 (Version None)
Quarter: 2011Q2

REPORT INFORMATION
  Report Type: 
  Country: None (occurrence: None)
  Receive Date: 20110426
  Receipt Date: 20110414
  Transmission Date: 20111010
  Serious: Yes (Hospitalization)
  Sender: FDA-Public Use
  Company Number: JP-GENENTECH-314901

PATIENT
  Sex: Male
  Weight: 53 kg

DRUGS (28)
  1. OMALIZUMAB [Suspect]
     Indication: ASTHMA
     Dosage: 225 MG, Q2W
     Route: 058
     Dates: start: 20091009
  2. SYMBICORT [Concomitant]
  3. MIYA-BM [Concomitant]
     Indication: PRODUCT USED FOR UNKNOWN INDICATION
  4. RISPERDAL [Concomitant]
     Indication: PRODUCT USED FOR UNKNOWN INDICATION
     Dosage: UNK
     Dates: start: 20100302
  5. RISPERDAL [Concomitant]
     Dosage: UNK
  6. OMALIZUMAB [Suspect]
     Dosage: 225 MG, Q2W
     Route: 058
     Dates: start: 20100205
  7. OMALIZUMAB [Suspect]
     Dosage: 225 MG, Q2W
     Route: 058
     Dates: start: 20100402, end: 20100402
  8. PREDONINE [Suspect]
     Dosage: 10 MG, QD
     Route: 048
     Dates: start: 20100116, end: 20100122
  9. PREDONINE [Suspect]
     Dosage: 10 MG, QD
     Route: 048
     Dates: start: 20100123, end: 20100302
  10. QVAR 40 [Concomitant]
     Indication: PRODUCT USED FOR UNKNOWN INDICATION
     Dosage: UNK
     Dates: start: 20090120
  11. TAKEPRON [Concomitant]
     Indication: PRODUCT USED FOR UNKNOWN INDICATION
  12. OMALIZUMAB [Suspect]
     Dosage: 225 MG, Q2W
     Route: 058
     Dates: start: 20100122
  13. OMALIZUMAB [Suspect]
     Dosage: 225 MG, Q2W
     Route: 058
     Dates: start: 20100219
  14. ADOAIR [Concomitant]
     Indication: PRODUCT USED FOR UNKNOWN INDICATION
     Dosage: UNK
     Dates: start: 20090317, end: 20100120
  15. OMALIZUMAB [Suspect]
     Dosage: 225 MG, Q2W
     Route: 058
     Dates: start: 20091218
  16. OMALIZUMAB [Suspect]
     Dosage: 225 MG, Q2W
     Route: 058
     Dates: start: 20100305
  17. ONON [Concomitant]
     Indication: PRODUCT USED FOR UNKNOWN INDICATION
     Dosage: UNK
     Dates: start: 20090109
  18. HERBESSER R [Concomitant]
     Indication: PRODUCT USED FOR UNKNOWN INDICATION
  19. CLARITHROMYCIN [Concomitant]
     Indication: PRODUCT USED FOR UNKNOWN INDICATION
     Dosage: UNK
     Dates: start: 20100116
  20. AVELOX [Concomitant]
     Indication: PRODUCT USED FOR UNKNOWN INDICATION
     Dosage: UNK
     Dates: start: 20100224, end: 20100302
  21. PREDONINE [Suspect]
     Indication: ASTHMA
     Dosage: 5 MG, QD
     Route: 048
     Dates: start: 20091225, end: 20100104
  22. PREDONINE [Suspect]
     Dosage: 15 MG, QD
     Route: 048
     Dates: start: 20100303
  23. MUCODYNE [Concomitant]
     Indication: PRODUCT USED FOR UNKNOWN INDICATION
  24. RISPERDAL [Concomitant]
     Dosage: UNK
     Dates: end: 20100308
  25. OMALIZUMAB [Suspect]
     Dosage: 225 MG, Q2W
     Route: 058
     Dates: start: 20100108
  26. SYMBICORT [Concomitant]
     Indication: PRODUCT USED FOR UNKNOWN INDICATION
     Dosage: UNK
     Dates: start: 20100121
  27. TAMSULOSIN HCL [Concomitant]
     Indication: PRODUCT USED FOR UNKNOWN INDICATION
  28. MYSLEE [Concomitant]
     Indication: PRODUCT USED FOR UNKNOWN INDICATION

REACTIONS (3)
  - ASTHMA [None]
  - PERSECUTORY DELUSION [None]
  - DELIRIUM [None]
